FAERS Safety Report 21353971 (Version 1)
Quarter: 2022Q3

REPORT INFORMATION
  Report Type: Spontaneous
  Country: CN (occurrence: None)
  Receive Date: 20220920
  Receipt Date: 20220920
  Transmission Date: 20221026
  Serious: Yes (Death, Other)
  Sender: FDA-Public Use
  Company Number: CN-ROCHE-3179825

PATIENT
  Age: 66 Year
  Sex: Male

DRUGS (10)
  1. RITUXIMAB [Suspect]
     Active Substance: RITUXIMAB
     Indication: Diffuse large B-cell lymphoma
     Route: 065
     Dates: start: 20191211, end: 202006
  2. RITUXIMAB [Suspect]
     Active Substance: RITUXIMAB
     Dosage: ZR
     Route: 065
     Dates: start: 20210419, end: 20210929
  3. CYCLOPHOSPHAMIDE [Concomitant]
     Active Substance: CYCLOPHOSPHAMIDE
     Indication: Diffuse large B-cell lymphoma
     Dates: start: 20191211, end: 20200411
  4. DOXORUBICIN [Concomitant]
     Active Substance: DOXORUBICIN
     Indication: Diffuse large B-cell lymphoma
     Dates: start: 20191211, end: 20200411
  5. VINCRISTINE [Concomitant]
     Active Substance: VINCRISTINE
     Indication: Diffuse large B-cell lymphoma
     Dates: start: 20191211, end: 20200411
  6. PREDNISONE [Concomitant]
     Active Substance: PREDNISONE
     Indication: Diffuse large B-cell lymphoma
     Dates: start: 20191211, end: 20200411
  7. CISPLATIN [Concomitant]
     Active Substance: CISPLATIN
     Indication: Diffuse large B-cell lymphoma
     Dates: start: 20210419, end: 20210929
  8. CYTARABINE [Concomitant]
     Active Substance: CYTARABINE
     Indication: Diffuse large B-cell lymphoma
     Dates: start: 20210419, end: 20210929
  9. DEXAMETHASONE [Concomitant]
     Active Substance: DEXAMETHASONE
     Indication: Diffuse large B-cell lymphoma
     Dates: start: 20210419, end: 20210929
  10. ZANUBRUTINIB [Concomitant]
     Active Substance: ZANUBRUTINIB
     Indication: Diffuse large B-cell lymphoma

REACTIONS (9)
  - Adenovirus infection [Unknown]
  - Myelosuppression [Unknown]
  - Cardiac failure [Unknown]
  - Respiratory failure [Unknown]
  - Renal failure [Unknown]
  - Hypovolaemic shock [Unknown]
  - Death [Fatal]
  - Haemophagocytic lymphohistiocytosis [Unknown]
  - Oral infection [Unknown]

NARRATIVE: CASE EVENT DATE: 20211030
